FAERS Safety Report 19361658 (Version 1)
Quarter: 2021Q2

REPORT INFORMATION
  Report Type: Report from Study
  Country: None (occurrence: US)
  Receive Date: 20210602
  Receipt Date: 20210602
  Transmission Date: 20210717
  Serious: No
  Sender: FDA-Public Use
  Company Number: US-MDD US OPERATIONS-USW202005-001045

PATIENT
  Age: 66 Year
  Weight: 79.37 kg

DRUGS (14)
  1. PLAVIX [Concomitant]
     Active Substance: CLOPIDOGREL BISULFATE
  2. PRAMIPEXOLE. [Concomitant]
     Active Substance: PRAMIPEXOLE
  3. AZELASTINE. [Concomitant]
     Active Substance: AZELASTINE HYDROCHLORIDE
     Dosage: UNKNOWN
     Route: 045
  4. METOPROLOL. [Concomitant]
     Active Substance: METOPROLOL
     Dosage: UNKNOWN
  5. OFEV [Concomitant]
     Active Substance: NINTEDANIB
  6. GABAPENTIN. [Concomitant]
     Active Substance: GABAPENTIN
  7. FLUTICASONE. [Concomitant]
     Active Substance: FLUTICASONE
     Dosage: UNKNOWN
     Route: 045
  8. LEVODOPA [Concomitant]
     Active Substance: LEVODOPA
     Dosage: UNKNOWN
  9. APOKYN [Suspect]
     Active Substance: APOMORPHINE HYDROCHLORIDE
     Indication: PARKINSON^S DISEASE
     Route: 058
  10. ARTORVASTATIN [Concomitant]
  11. ALLEGRA [Concomitant]
     Active Substance: FEXOFENADINE HYDROCHLORIDE
     Dosage: UNKNOWN
  12. MONTELUKAST [Concomitant]
     Active Substance: MONTELUKAST SODIUM
  13. ASA [Concomitant]
     Active Substance: ASPIRIN
  14. RYTARY [Concomitant]
     Active Substance: CARBIDOPA\LEVODOPA

REACTIONS (4)
  - Nausea [Recovered/Resolved]
  - Yawning [Unknown]
  - Somnolence [Unknown]
  - Blood pressure decreased [Unknown]

NARRATIVE: CASE EVENT DATE: 20200514
